FAERS Safety Report 8835456 (Version 2)
Quarter: 2012Q4

REPORT INFORMATION
  Report Type: 
  Country: NZ (occurrence: NZ)
  Receive Date: 20121011
  Receipt Date: 20121022
  Transmission Date: 20130627
  Serious: Yes (Other)
  Sender: FDA-Public Use
  Company Number: PHHY2012NZ089270

PATIENT
  Age: 37 Year
  Sex: Male

DRUGS (3)
  1. CLOZARIL [Suspect]
     Indication: SCHIZOPHRENIA
     Dosage: 300 mg, UNK
     Route: 048
     Dates: start: 20060912, end: 20121005
  2. RISPERIDONE [Concomitant]
     Indication: PSYCHOTIC DISORDER
     Dosage: 1 mg,nocte
     Route: 048
     Dates: end: 20121005
  3. TERAZOSIN [Concomitant]
     Indication: SALIVARY HYPERSECRETION
     Dosage: 4 mg,nocte
     Route: 048
     Dates: end: 20121005

REACTIONS (5)
  - Palpitations [Unknown]
  - Extrasystoles [Unknown]
  - Electrocardiogram QT prolonged [Recovered/Resolved]
  - Dizziness [Unknown]
  - Orthostatic hypotension [Unknown]
